FAERS Safety Report 16641707 (Version 3)
Quarter: 2019Q3

REPORT INFORMATION
  Report Type: Report from Study
  Country: None (occurrence: US)
  Receive Date: 20190729
  Receipt Date: 20190912
  Transmission Date: 20191004
  Serious: Yes (Other)
  Sender: FDA-Public Use
  Company Number: US-ABBVIE-19K-163-2868040-00

PATIENT
  Sex: Female
  Weight: 74.91 kg

DRUGS (2)
  1. HUMIRA [Suspect]
     Active Substance: ADALIMUMAB
     Route: 058
     Dates: start: 2018
  2. HUMIRA [Suspect]
     Active Substance: ADALIMUMAB
     Indication: HIDRADENITIS
     Route: 058

REACTIONS (7)
  - Hidradenitis [Not Recovered/Not Resolved]
  - Injection site pruritus [Recovering/Resolving]
  - Haemorrhage [Recovering/Resolving]
  - Cyst [Not Recovered/Not Resolved]
  - Hernia [Recovering/Resolving]
  - Sensitivity to weather change [Unknown]
  - Pain [Not Recovered/Not Resolved]
